FAERS Safety Report 17128637 (Version 1)
Quarter: 2019Q4

REPORT INFORMATION
  Report Type: Spontaneous
  Country: US (occurrence: US)
  Receive Date: 20191209
  Receipt Date: 20191209
  Transmission Date: 20200122
  Serious: Yes (Life-Threatening, Hospitalization)
  Sender: FDA-Public Use
  Company Number: US-MYLANLABS-2019M1120180

PATIENT
  Age: 21 Year
  Sex: Female

DRUGS (15)
  1. LACOSAMIDE. [Suspect]
     Active Substance: LACOSAMIDE
     Indication: FEBRILE INFECTION-RELATED EPILEPSY SYNDROME
     Dosage: INITIAL DOSE NOT STATED
     Route: 065
  2. PHENOBARBITAL. [Suspect]
     Active Substance: PHENOBARBITAL
     Indication: FEBRILE INFECTION-RELATED EPILEPSY SYNDROME
     Dosage: INITIAL DOSE NOT STATED
     Route: 042
  3. PHENOBARBITAL. [Suspect]
     Active Substance: PHENOBARBITAL
     Indication: FEBRILE INFECTION-RELATED EPILEPSY SYNDROME
     Dosage: THREE TIMES A DAY
     Route: 065
  4. METHYLPREDNISOLONE. [Suspect]
     Active Substance: METHYLPREDNISOLONE
     Indication: FEBRILE INFECTION-RELATED EPILEPSY SYNDROME
     Dosage: UNK
     Route: 042
  5. PROPOFOL. [Concomitant]
     Active Substance: PROPOFOL
     Indication: ANAESTHESIA
     Dosage: UNK
     Route: 042
  6. LACOSAMIDE. [Suspect]
     Active Substance: LACOSAMIDE
     Dosage: 200 MILLIGRAM, BID
     Route: 065
  7. LEVETIRACETAM. [Suspect]
     Active Substance: LEVETIRACETAM
     Indication: FEBRILE INFECTION-RELATED EPILEPSY SYNDROME
     Dosage: INITIAL DOSE NOT STATED
     Route: 065
  8. CLOBAZAM. [Suspect]
     Active Substance: CLOBAZAM
     Indication: FEBRILE INFECTION-RELATED EPILEPSY SYNDROME
     Dosage: 20 MILLIGRAM, BID
     Route: 065
  9. KETAMINE [Concomitant]
     Active Substance: KETAMINE
     Indication: ANAESTHESIA
     Dosage: UNK
     Route: 042
  10. MIDAZOLAM [Suspect]
     Active Substance: MIDAZOLAM HYDROCHLORIDE
     Indication: FEBRILE INFECTION-RELATED EPILEPSY SYNDROME
     Dosage: UNK
     Route: 042
  11. IMMUNE GLOBULIN (IMMUNOGLOBULINS NOS) [Suspect]
     Active Substance: IMMUNE GLOBULIN NOS
     Indication: FEBRILE INFECTION-RELATED EPILEPSY SYNDROME
     Dosage: UNK
     Route: 042
  12. PERAMPANEL [Suspect]
     Active Substance: PERAMPANEL
     Indication: FEBRILE INFECTION-RELATED EPILEPSY SYNDROME
     Dosage: 8 MILLIGRAM, QD
     Route: 065
  13. LEVETIRACETAM. [Suspect]
     Active Substance: LEVETIRACETAM
     Dosage: 2500 MILLIGRAM
     Route: 065
  14. FOSPHENYTOIN [Suspect]
     Active Substance: FOSPHENYTOIN
     Indication: FEBRILE INFECTION-RELATED EPILEPSY SYNDROME
     Dosage: UNK
     Route: 042
  15. PREDNISONE. [Suspect]
     Active Substance: PREDNISONE
     Indication: FEBRILE INFECTION-RELATED EPILEPSY SYNDROME
     Dosage: TAPERED DOSE
     Route: 065

REACTIONS (1)
  - Treatment failure [Unknown]
